FAERS Safety Report 10593852 (Version 3)
Quarter: 2014Q4

REPORT INFORMATION
  Report Type: Report from Study
  Country: GB (occurrence: GB)
  Receive Date: 20141119
  Receipt Date: 20141201
  Transmission Date: 20150529
  Serious: Yes (Hospitalization, Other)
  Sender: FDA-Public Use
  Company Number: GB-ABBVIE-14K-167-1308615-00

PATIENT
  Age: 51 Year
  Sex: Female
  Weight: 73.6 kg

DRUGS (6)
  1. OMEPRAZOLE. [Concomitant]
     Active Substance: OMEPRAZOLE
     Indication: GASTROOESOPHAGEAL REFLUX DISEASE
     Route: 048
  2. PEPTAC [Concomitant]
     Active Substance: RANITIDINE HYDROCHLORIDE
     Indication: GASTROOESOPHAGEAL REFLUX DISEASE
     Dosage: ONE OFF DOSE
     Route: 048
     Dates: start: 20141108
  3. PIRITON [Concomitant]
     Active Substance: CHLORPHENIRAMINE MALEATE
     Indication: HYPERSENSITIVITY
     Route: 048
  4. PIRITON [Concomitant]
     Active Substance: CHLORPHENIRAMINE MALEATE
     Indication: SEASONAL ALLERGY
  5. PREDNISOLONE. [Concomitant]
     Active Substance: PREDNISOLONE
     Indication: CROHN^S DISEASE
     Dosage: REDUCING DOSE
     Route: 048
     Dates: start: 20141016
  6. HUMIRA [Suspect]
     Active Substance: ADALIMUMAB
     Indication: SURGERY
     Route: 058
     Dates: start: 20140122, end: 20141103

REACTIONS (6)
  - Alanine aminotransferase increased [Unknown]
  - C-reactive protein increased [Unknown]
  - Intestinal obstruction [Recovering/Resolving]
  - Intestinal perforation [Recovering/Resolving]
  - Blood albumin decreased [Unknown]
  - Malaise [Unknown]

NARRATIVE: CASE EVENT DATE: 20141107
